FAERS Safety Report 6187290-2 (Version None)
Quarter: 2009Q2

REPORT INFORMATION
  Report Type: 
  Country: None (occurrence: None)
  Receive Date: 20090512
  Receipt Date: 20090501
  Transmission Date: 20091009
  Serious: Yes (Other)
  Sender: FDA-Public Use
  Company Number: JP-JNJFOC-20090500376

PATIENT

DRUGS (2)
  1. REMICADE [Suspect]
     Dosage: DOCUMENTED AS THE 18TH INFUSION
     Route: 042
  2. REMICADE [Suspect]
     Indication: RHEUMATOID ARTHRITIS
     Dosage: THE PATIENT RECEIVED 17 INFUSIONS WITH UNSPECIFIED DATES
     Route: 042

REACTIONS (1)
  - LYMPHOMA [None]
